FAERS Safety Report 4781267-7 (Version None)
Quarter: 2005Q3

REPORT INFORMATION
  Report Type: 
  Country: None (occurrence: None)
  Receive Date: 20050928
  Receipt Date: 20050914
  Transmission Date: 20060218
  Serious: Yes (Other)
  Sender: FDA-Public Use
  Company Number: HCM-0120

PATIENT
  Age: 76 Year
  Sex: Male

DRUGS (12)
  1. TOPOTECAN [Suspect]
     Route: 042
     Dates: start: 20040601, end: 20040806
  2. AMRUBICIN HYDROCHLORIDE [Suspect]
     Route: 042
     Dates: start: 20040601, end: 20040806
  3. GRANISETRON  HCL [Concomitant]
     Dosage: 1AMP PER DAY
     Route: 042
     Dates: start: 20040601, end: 20040806
  4. ZOLPIDEM TARTRATE [Concomitant]
     Dosage: 10MG PER DAY
     Route: 048
     Dates: start: 20040601
  5. MAGNESIUM OXIDE [Concomitant]
     Dosage: 990MG PER DAY
     Route: 048
     Dates: start: 20040603, end: 20040609
  6. NORFLOXACIN [Concomitant]
     Dosage: 300MG PER DAY
     Route: 048
     Dates: start: 20040610, end: 20040614
  7. CEFDINIR [Concomitant]
     Dosage: 300MG PER DAY
     Route: 048
     Dates: start: 20040623, end: 20040630
  8. FILGRASTIM [Concomitant]
     Dosage: 75MCG PER DAY
     Dates: start: 20040714, end: 20040817
  9. CEFAZOLIN SODIUM [Concomitant]
     Dosage: 2G PER DAY
     Dates: start: 20040624, end: 20040626
  10. CEFCAPENE PIVOXIL HYDROCHLORIDE [Concomitant]
     Dosage: 300MG PER DAY
     Route: 048
     Dates: start: 20040709, end: 20040718
  11. ANTIBIOTICS [Concomitant]
     Dosage: 3G PER DAY
     Route: 048
     Dates: start: 20040712, end: 20040714
  12. DOXORUBICIN HYDROCHLORIDE [Concomitant]
     Dosage: 20MG PER DAY
     Route: 042
     Dates: start: 20040630, end: 20040730

REACTIONS (8)
  - ALANINE AMINOTRANSFERASE INCREASED [None]
  - BLOOD ALKALINE PHOSPHATASE INCREASED [None]
  - BLOOD LACTATE DEHYDROGENASE INCREASED [None]
  - HAEMOGLOBIN DECREASED [None]
  - NEUTROPHIL COUNT DECREASED [None]
  - PLATELET COUNT DECREASED [None]
  - RED BLOOD CELL COUNT DECREASED [None]
  - WHITE BLOOD CELL COUNT DECREASED [None]
